FAERS Safety Report 9753209 (Version 1)
Quarter: 2013Q4

REPORT INFORMATION
  Report Type: Spontaneous
  Country: US (occurrence: US)
  Receive Date: 20131213
  Receipt Date: 20131213
  Transmission Date: 20140711
  Serious: No
  Sender: FDA-Public Use
  Company Number: US-GILEAD-2010-0027315

PATIENT
  Sex: Female
  Weight: 78.92 kg

DRUGS (18)
  1. LETAIRIS [Suspect]
     Indication: PULMONARY ARTERIAL HYPERTENSION
     Route: 048
     Dates: start: 20070813
  2. DILTIAZEM CD [Concomitant]
  3. NORVASC [Concomitant]
  4. LANOXIN [Concomitant]
  5. LASIX [Concomitant]
  6. COUMADIN [Concomitant]
  7. PLAVIX [Concomitant]
  8. FOSAMAX [Concomitant]
  9. SINGULAIR [Concomitant]
  10. SYNTHROID [Concomitant]
  11. COLACE [Concomitant]
  12. ALLEGRA [Concomitant]
  13. ANUSOL HC [Concomitant]
  14. TYLENOL [Concomitant]
  15. TUMS EX [Concomitant]
  16. CALCIUM +D [Concomitant]
  17. VITAMIN D [Concomitant]
  18. POT CL [Concomitant]

REACTIONS (1)
  - Eructation [Unknown]
